FAERS Safety Report 5457976-3 (Version None)
Quarter: 2007Q3

REPORT INFORMATION
  Report Type: 
  Country: None (occurrence: None)
  Receive Date: 20070917
  Receipt Date: 20070910
  Transmission Date: 20080115
  Serious: Yes (Other)
  Sender: FDA-Public Use
  Company Number: 2007328447

PATIENT
  Age: 44 Year
  Sex: Female
  Weight: 106.1417 kg

DRUGS (3)
  1. LISTERINE AGENT COOL BLUE (UNSPECIFIED) (NO ACTIVE INGREDIENT) [Suspect]
     Indication: DENTAL PLAQUE
     Dosage: RECOMMENDED DOSE TWICE A DAY (2 IN 1 D), ORAL
     Route: 048
     Dates: start: 20070201, end: 20070401
  2. COUMADIN [Concomitant]
  3. LIPITOR [Concomitant]

REACTIONS (5)
  - BACTERIAL INFECTION [None]
  - CELLULITIS [None]
  - HYPERTENSION [None]
  - PAIN [None]
  - ULCER [None]
